FAERS Safety Report 12915173 (Version 1)
Quarter: 2016Q4

REPORT INFORMATION
  Report Type: Spontaneous
  Country: US (occurrence: US)
  Receive Date: 20161106
  Receipt Date: 20161106
  Transmission Date: 20170207
  Serious: No
  Sender: FDA-Public Use
  Company Number: US-RELYPSA-RLY2016002556

PATIENT
  Sex: Male

DRUGS (8)
  1. SPS [Concomitant]
     Active Substance: SODIUM POLYSTYRENE SULFONATE
  2. CARVEDILOL. [Concomitant]
     Active Substance: CARVEDILOL
  3. LOVASTATIN. [Concomitant]
     Active Substance: LOVASTATIN
  4. VELTASSA [Suspect]
     Active Substance: PATIROMER
     Indication: HYPERKALAEMIA
     Dosage: 8.4 G, QD
     Route: 048
     Dates: start: 20160520, end: 2016
  5. LISINOPRIL. [Concomitant]
     Active Substance: LISINOPRIL
  6. HYDRALAZINE HCL [Concomitant]
     Active Substance: HYDRALAZINE HYDROCHLORIDE
  7. HYDROCHLOROTHIAZIDE. [Concomitant]
     Active Substance: HYDROCHLOROTHIAZIDE
  8. GLIMEPIRIDE. [Concomitant]
     Active Substance: GLIMEPIRIDE

REACTIONS (1)
  - Constipation [Unknown]

NARRATIVE: CASE EVENT DATE: 2016
